FAERS Safety Report 19589298 (Version 5)
Quarter: 2021Q3

REPORT INFORMATION
  Report Type: Report from Study
  Country: JP (occurrence: JP)
  Receive Date: 20210721
  Receipt Date: 20210813
  Transmission Date: 20211014
  Serious: Yes (Death, Hospitalization)
  Sender: FDA-Public Use
  Company Number: JP-ROCHE-2856257

PATIENT
  Age: 71 Year
  Sex: Male
  Weight: 65.5 kg

DRUGS (40)
  1. ATEZOLIZUMAB. [Suspect]
     Active Substance: ATEZOLIZUMAB
     Indication: PANCREATIC CARCINOMA METASTATIC
     Dosage: MOST RECENT DOSE 1680 MG OF ATEZOLIZUMAB PRIOR TO AE (ADVERSE EVENT): 25/MAY/2021
     Route: 041
     Dates: start: 20210330
  2. GEMCITABINE. [Suspect]
     Active Substance: GEMCITABINE
     Indication: PANCREATIC CARCINOMA METASTATIC
     Dosage: DAYS 1, 8, AND 15 OF EACH 28 DAY CYCLE (AS PER PROTOCOL)?MOST RECENT DOSE 1060 MG OF GEMCITABINE PRI
     Route: 042
     Dates: start: 20210330
  3. XYLOCAINE VISCOUS [Concomitant]
     Active Substance: LIDOCAINE HYDROCHLORIDE
     Dates: start: 20210629, end: 20210629
  4. TRANEXAMIC ACID. [Concomitant]
     Active Substance: TRANEXAMIC ACID
     Indication: SUBDURAL HAEMATOMA
     Route: 042
     Dates: start: 20210730, end: 20210730
  5. NAB?PACLITAXEL [Suspect]
     Active Substance: PACLITAXEL
     Indication: PANCREATIC CARCINOMA METASTATIC
     Dosage: ON DAYS 1, 8, AND 15 OF EACH 28 DAY CYCLE (AS PER PROTOCOL)?MOST RECENT DOSE 130 MG OF NAB?PACLITAXE
     Route: 042
     Dates: start: 20210330
  6. MIRACLID [Concomitant]
     Active Substance: ULINASTATIN
     Indication: PANCREATITIS
     Dates: start: 20210629, end: 20210629
  7. XYLOCAINE VISCOUS [Concomitant]
     Active Substance: LIDOCAINE HYDROCHLORIDE
     Dates: start: 20210629, end: 20210629
  8. HUMALOG [Concomitant]
     Active Substance: INSULIN LISPRO
     Indication: DIABETES MELLITUS
     Dates: start: 20210714
  9. TRESIBA [Concomitant]
     Active Substance: INSULIN DEGLUDEC
     Indication: DIABETES MELLITUS
     Dates: start: 20210324
  10. EQUMET COMBINATION TABLETS HD [Concomitant]
     Indication: DIABETES MELLITUS
     Dates: start: 20210427, end: 20210712
  11. GRANISETRON [Concomitant]
     Active Substance: GRANISETRON
     Dates: start: 20210525, end: 20210525
  12. SUREPOST [Concomitant]
     Active Substance: REPAGLINIDE
     Indication: DIABETES MELLITUS
     Dates: start: 20210705
  13. LACTEC [Concomitant]
     Active Substance: CALCIUM CHLORIDE ANHYDROUS\POTASSIUM CHLORIDE\SODIUM CHLORIDE\SODIUM LACTATE
     Dates: start: 20210629, end: 20210629
  14. VISIPAQUE [Concomitant]
     Active Substance: IODIXANOL
     Dates: start: 20210629, end: 20210629
  15. SOLULACT D [Concomitant]
     Dates: start: 20210630, end: 20210630
  16. HUMULIN R [Concomitant]
     Active Substance: INSULIN HUMAN
     Indication: DIABETES MELLITUS
     Dates: start: 20210712, end: 20210713
  17. GLYCERIN?FRUCTOSE [Concomitant]
     Active Substance: FRUCTOSE\GLYCERIN
     Indication: SUBDURAL HAEMATOMA
     Route: 042
     Dates: start: 20210730, end: 20210730
  18. TOCILIZUMAB. [Suspect]
     Active Substance: TOCILIZUMAB
     Indication: PANCREATIC CARCINOMA METASTATIC
     Dosage: ON DAY 1 OF EACH 28 DAY CYCLE (AS PER PROTOCOL)?MOST RECENT DOSE 556 MG OF TOCILIZUMAB PRIOR TO AE:
     Route: 042
     Dates: start: 20210330
  19. BEPOTASTINE BESILATE [Concomitant]
     Active Substance: BEPOTASTINE BESYLATE
     Indication: RASH
     Dates: start: 20210427
  20. DAIPHEN [Concomitant]
     Active Substance: SULFAMETHOXAZOLE\TRIMETHOPRIM
     Indication: INFECTION
     Dates: start: 20210712
  21. FFP?LR240 [Concomitant]
     Indication: SUBDURAL HAEMATOMA
     Route: 042
     Dates: start: 20210730, end: 20210730
  22. LOXOPROFEN [Concomitant]
     Active Substance: LOXOPROFEN
     Indication: TUMOUR PAIN
     Dates: start: 20210406
  23. PRIMPERAN [Concomitant]
     Active Substance: METOCLOPRAMIDE HYDROCHLORIDE
     Indication: NAUSEA
     Dates: start: 20210506
  24. MIDAZOLAM. [Concomitant]
     Active Substance: MIDAZOLAM
     Dates: start: 20210629, end: 20210629
  25. UROGRAFIN [Concomitant]
     Active Substance: DIATRIZOATE MEGLUMINE\DIATRIZOATE SODIUM
     Dates: start: 20210629, end: 20210629
  26. SCOPOLAMINE BUTYLBROMIDE [Concomitant]
     Active Substance: SCOPOLAMINE
     Dates: start: 20210629, end: 20210629
  27. ZOPICLONE [Concomitant]
     Active Substance: ZOPICLONE
     Indication: INSOMNIA
     Dates: start: 20210712
  28. DEXART [Concomitant]
     Active Substance: DEXAMETHASONE SODIUM PHOSPHATE
     Indication: NAUSEA
     Dates: start: 20210719, end: 20210719
  29. DOPAMINE HYDROCHLORIDE. [Concomitant]
     Active Substance: DOPAMINE HYDROCHLORIDE
     Indication: SUBDURAL HAEMATOMA
     Route: 042
     Dates: start: 20210730, end: 20210730
  30. PLATELETS [Concomitant]
     Active Substance: HUMAN PLATELET, ALLOGENIC
     Indication: SUBDURAL HAEMATOMA
     Route: 042
     Dates: start: 20210730, end: 20210730
  31. NARUSUS [Concomitant]
     Active Substance: HYDROMORPHONE HYDROCHLORIDE
     Indication: TUMOUR PAIN
     Dates: start: 20210418
  32. SUGLAT [Concomitant]
     Active Substance: IPRAGLIFLOZIN L-PROLINE
     Indication: DIABETES MELLITUS
     Dates: start: 20210427
  33. GRANISETRON [Concomitant]
     Active Substance: GRANISETRON
     Dates: start: 20210601, end: 20210601
  34. CARBAZOCHROME SODIUM SULFONATE [Concomitant]
     Active Substance: CARBAZOCHROME SODIUM SULFONATE
     Indication: SUBDURAL HAEMATOMA
     Route: 042
     Dates: start: 20210730, end: 20210730
  35. NEXIUM [Concomitant]
     Active Substance: ESOMEPRAZOLE MAGNESIUM
     Route: 048
  36. NARURAPID [Concomitant]
     Active Substance: HYDROMORPHONE HYDROCHLORIDE
     Indication: TUMOUR PAIN
     Dates: start: 20210415
  37. MAGNESIUM OXIDE. [Concomitant]
     Active Substance: MAGNESIUM OXIDE
     Indication: CONSTIPATION
     Dates: start: 20210418
  38. GRANISETRON [Concomitant]
     Active Substance: GRANISETRON
     Dates: start: 20210719, end: 20210719
  39. COMIRNATY [Concomitant]
     Active Substance: TOZINAMERAN
     Route: 030
     Dates: start: 20210708, end: 20210708
  40. TAZOPIPE [Concomitant]
     Active Substance: PIPERACILLIN SODIUM\TAZOBACTAM SODIUM
     Indication: INFECTION
     Route: 042
     Dates: start: 20210718

REACTIONS (1)
  - Interstitial lung disease [Not Recovered/Not Resolved]

NARRATIVE: CASE EVENT DATE: 20210621
